FAERS Safety Report 7777716-2 (Version None)
Quarter: 2011Q3

REPORT INFORMATION
  Report Type: 
  Country: None (occurrence: None)
  Receive Date: 20110926
  Receipt Date: 20110919
  Transmission Date: 20111222
  Serious: Yes (Hospitalization)
  Sender: FDA-Public Use
  Company Number: US-BIOGENIDEC-2011BI029852

PATIENT
  Age: 47 Year
  Sex: Female

DRUGS (5)
  1. LOVENOX [Concomitant]
  2. LOVENOX [Concomitant]
     Indication: THROMBOSIS
     Dates: start: 20080101, end: 20110101
  3. LOVENOX [Concomitant]
     Indication: TRANSIENT ISCHAEMIC ATTACK
     Dates: start: 20080101, end: 20110101
  4. LOVENOX [Concomitant]
  5. TYSABRI [Suspect]
     Indication: MULTIPLE SCLEROSIS
     Route: 042
     Dates: start: 20090819, end: 20110726

REACTIONS (2)
  - THROMBOSIS [None]
  - MULTIPLE SCLEROSIS [None]
